FAERS Safety Report 6642929-X (Version None)
Quarter: 2010Q1

REPORT INFORMATION
  Report Type: 
  Country: None (occurrence: None)
  Receive Date: 20100319
  Receipt Date: 20100308
  Transmission Date: 20100710
  Serious: Yes (Death)
  Sender: FDA-Public Use
  Company Number: AU-JNJFOC-20100304134

PATIENT
  Age: 58 Year
  Sex: Female

DRUGS (5)
  1. TRAMADOL HYDROCHLORIDE [Suspect]
     Indication: DRUG USE FOR UNKNOWN INDICATION
     Route: 065
  2. QUETIAPINE [Concomitant]
     Route: 065
  3. FUROSEMIDE [Concomitant]
  4. GLICLAZIDE [Concomitant]
     Route: 065
  5. CHLORPROMAZINE [Concomitant]
     Route: 065

REACTIONS (1)
  - DEATH [None]
